FAERS Safety Report 9129481 (Version 2)
Quarter: 2013Q1

REPORT INFORMATION
  Report Type: Spontaneous
  Country: JP (occurrence: JP)
  Receive Date: 20130228
  Receipt Date: 20130325
  Transmission Date: 20140127
  Serious: No
  Sender: FDA-Public Use
  Company Number: JP-GLAXOSMITHKLINE-B0867331A

PATIENT
  Age: 36 Year
  Sex: Male

DRUGS (10)
  1. LAMICTAL [Suspect]
     Indication: SEDATION
     Dosage: 25MG PER DAY
     Route: 048
     Dates: start: 20120611, end: 201206
  2. LAMICTAL [Suspect]
     Indication: SEDATION
     Dosage: 50MG PER DAY
     Route: 048
     Dates: start: 201206, end: 20120704
  3. LAMICTAL [Suspect]
     Indication: SEDATION
     Dosage: 100MG PER DAY
     Route: 048
     Dates: start: 20120705, end: 20120708
  4. NEULEPTIL [Concomitant]
     Indication: SEDATION
     Dosage: 5MG TWICE PER DAY
     Route: 048
     Dates: start: 2002
  5. NEULEPTIL [Concomitant]
     Indication: SEDATION
     Dosage: 10MG PER DAY
     Route: 048
     Dates: start: 2002
  6. LEXIN [Concomitant]
     Indication: SEDATION
     Dosage: 200MG TWICE PER DAY
     Route: 048
     Dates: start: 2002
  7. ZYPREXA [Concomitant]
     Indication: SEDATION
     Dosage: 10MG PER DAY
     Route: 048
     Dates: start: 2010
  8. TASMOLIN [Concomitant]
     Route: 048
  9. TEGRETOL [Concomitant]
     Route: 048
  10. CEREB [Concomitant]
     Indication: SEDATION
     Dosage: 4ML PER DAY
     Route: 048
     Dates: start: 201209

REACTIONS (2)
  - Eczema [Recovered/Resolved]
  - Mouth ulceration [Recovered/Resolved]
